FAERS Safety Report 4293132-2 (Version None)
Quarter: 2004Q1

REPORT INFORMATION
  Report Type: 
  Country: None (occurrence: None)
  Receive Date: 20040212
  Receipt Date: 20030516
  Transmission Date: 20041129
  Serious: No
  Sender: FDA-Public Use
  Company Number: US-GLAXOSMITHKLINE-A0408667A

PATIENT
  Age: 23 Year
  Sex: Female

DRUGS (2)
  1. PAXIL [Suspect]
     Indication: PANIC ATTACK
     Route: 048
  2. BIRTH CONTROL NAME UNKNOWN [Concomitant]
     Route: 065

REACTIONS (7)
  - DRUG INEFFECTIVE [None]
  - DRUG WITHDRAWAL SYNDROME [None]
  - FATIGUE [None]
  - HEADACHE [None]
  - MIGRAINE [None]
  - NAUSEA [None]
  - VERTIGO [None]
